FAERS Safety Report 22851239 (Version 2)
Quarter: 2023Q4

REPORT INFORMATION
  Report Type: Spontaneous
  Country: FR (occurrence: FR)
  Receive Date: 20230822
  Receipt Date: 20231017
  Transmission Date: 20240110
  Serious: Yes (Death, Life-Threatening, Hospitalization)
  Sender: FDA-Public Use
  Company Number: FR-BAYER-2023A114413

PATIENT
  Sex: Female
  Weight: 58 kg

DRUGS (2)
  1. REGORAFENIB [Suspect]
     Active Substance: REGORAFENIB
     Indication: Colorectal cancer metastatic
     Dosage: DAILY DOSE 80 MG (2 TABLETS OF 40 MG)
     Dates: start: 20230706
  2. REGORAFENIB [Suspect]
     Active Substance: REGORAFENIB
     Indication: Colorectal cancer metastatic
     Dosage: CYCLE1 DAY 21
     Dates: start: 20230727

REACTIONS (2)
  - Colorectal cancer metastatic [Fatal]
  - Off label use [None]

NARRATIVE: CASE EVENT DATE: 20230706
